FAERS Safety Report 4390963-5 (Version None)
Quarter: 2004Q3

REPORT INFORMATION
  Report Type: 
  Country: None (occurrence: None)
  Receive Date: 20040707
  Receipt Date: 20040625
  Transmission Date: 20050211
  Serious: Yes (Hospitalization)
  Sender: FDA-Public Use
  Company Number: CH-BRISTOL-MYERS SQUIBB COMPANY-12629937

PATIENT
  Age: 54 Year
  Sex: Male

DRUGS (11)
  1. EFAVIRENZ TABS [Suspect]
     Indication: HIV INFECTION
     Route: 048
     Dates: start: 20010101, end: 20040601
  2. CLOPIDOGREL BISULFATE [Interacting]
     Route: 048
     Dates: start: 20031201
  3. CALCIUM DOBESILATE [Concomitant]
  4. CARVEDILOL [Concomitant]
  5. DOMPERIDONE [Concomitant]
  6. LAMIVUDINE [Concomitant]
  7. LISINOPRIL [Concomitant]
  8. NADROPARINE [Concomitant]
  9. PHENPROCOUMON [Concomitant]
  10. PRAVASTATIN SODIUM [Concomitant]
  11. ZIDOVUDINE [Concomitant]

REACTIONS (2)
  - DRUG INEFFECTIVE [None]
  - DRUG INTERACTION [None]
